FAERS Safety Report 6234792-6 (Version None)
Quarter: 2009Q2

REPORT INFORMATION
  Report Type: 
  Country: None (occurrence: None)
  Receive Date: 20090618
  Receipt Date: 20090616
  Transmission Date: 20091009
  Serious: Yes (Death, Hospitalization)
  Sender: FDA-Public Use
  Company Number: PHHY2008US15778

PATIENT
  Sex: Male
  Weight: 55.238 kg

DRUGS (4)
  1. EXJADE [Suspect]
     Indication: IRON OVERLOAD
     Dosage: 2500 MG, QD
     Route: 048
     Dates: start: 20080523, end: 20080610
  2. EXJADE [Suspect]
     Indication: MYELODYSPLASTIC SYNDROME
  3. DAROGEN [Concomitant]
     Dosage: 50 MG, UNK
     Route: 042
     Dates: start: 20080602, end: 20080606
  4. BACTRIN DS [Concomitant]
     Route: 048
     Dates: start: 20080602, end: 20080611

REACTIONS (7)
  - ACUTE MYELOID LEUKAEMIA [None]
  - BLAST CELL COUNT INCREASED [None]
  - LEUKAEMIC INFILTRATION PULMONARY [None]
  - MALIGNANT NEOPLASM PROGRESSION [None]
  - PANCYTOPENIA [None]
  - PYREXIA [None]
  - SEPSIS [None]
